FAERS Safety Report 25352634 (Version 1)
Quarter: 2025Q2

REPORT INFORMATION
  Report Type: Report from Study
  Country: US (occurrence: US)
  Receive Date: 20250523
  Receipt Date: 20250523
  Transmission Date: 20250717
  Serious: Yes (Hospitalization, Other)
  Sender: MALLINCKRODT
  Company Number: US-MALLINCKRODT-MNK202500708

PATIENT
  Sex: Female

DRUGS (12)
  1. CORTICOTROPIN [Suspect]
     Active Substance: CORTICOTROPIN
     Indication: Rheumatoid arthritis
     Dosage: 80 UNITS
     Route: 058
  2. CORTICOTROPIN [Suspect]
     Active Substance: CORTICOTROPIN
     Indication: Rheumatoid arthritis
  3. SAMBUCUS NIGRA [Concomitant]
     Active Substance: HOMEOPATHICS
  4. OTHERA [ESOMEPRAZOLE MAGNESIUM] [Concomitant]
  5. ADVAIR HFA [Concomitant]
     Active Substance: FLUTICASONE PROPIONATE\SALMETEROL XINAFOATE
  6. ALBUTEROL SULFATE [Concomitant]
     Active Substance: ALBUTEROL SULFATE
  7. MONTELUKAST SODIUM [Concomitant]
     Active Substance: MONTELUKAST SODIUM
  8. LEFLUNOMIDE [Concomitant]
     Active Substance: LEFLUNOMIDE
  9. IBUPROFEN [Concomitant]
     Active Substance: IBUPROFEN
  10. PREDNISONE [Concomitant]
     Active Substance: PREDNISONE
  11. AMLODIPINE BESYLATE [Concomitant]
     Active Substance: AMLODIPINE BESYLATE
  12. ATENOLOL [Concomitant]
     Active Substance: ATENOLOL

REACTIONS (9)
  - Sacroiliac joint dysfunction [Unknown]
  - Rheumatoid arthritis [Unknown]
  - Synovial cyst [Unknown]
  - Joint fluid drainage [Unknown]
  - Procedural pain [Not Recovered/Not Resolved]
  - Arthralgia [Unknown]
  - Respiratory tract congestion [Unknown]
  - Cough [Unknown]
  - Laboratory test abnormal [Unknown]
